FAERS Safety Report 8442999-2 (Version None)
Quarter: 2012Q2

REPORT INFORMATION
  Report Type: 
  Country: None (occurrence: None)
  Receive Date: 20120615
  Receipt Date: 20120605
  Transmission Date: 20120825
  Serious: Yes (Other)
  Sender: FDA-Public Use
  Company Number: US-ABBOTT-12P-163-0933414-00

PATIENT
  Age: 59 Year
  Sex: Female

DRUGS (7)
  1. EFFEXOR [Concomitant]
     Indication: DEPRESSION
  2. VARIOUS SUPPLEMENTS [Concomitant]
     Indication: PRODUCT USED FOR UNKNOWN INDICATION
  3. SYNTHROID [Suspect]
     Indication: HYPOTHYROIDISM
  4. NEXIUM [Concomitant]
     Indication: GASTROOESOPHAGEAL REFLUX DISEASE
  5. PLAQUENIL [Concomitant]
     Indication: PRODUCT USED FOR UNKNOWN INDICATION
  6. HUMIRA [Suspect]
     Indication: RHEUMATOID ARTHRITIS
     Dates: start: 20120425
  7. SYNTHROID [Suspect]

REACTIONS (5)
  - THYROID DISORDER [None]
  - GASTROINTESTINAL DISORDER [None]
  - GALLBLADDER OPERATION [None]
  - DYSPNOEA [None]
  - PAIN [None]
